FAERS Safety Report 6546739-3 (Version None)
Quarter: 2010Q1

REPORT INFORMATION
  Report Type: 
  Country: None (occurrence: None)
  Receive Date: 20100122
  Receipt Date: 20100114
  Transmission Date: 20100710
  Serious: Yes (Other)
  Sender: FDA-Public Use
  Company Number: KR-EISAI INC.-E3810-03437-SPO-KR

PATIENT
  Sex: Male

DRUGS (1)
  1. PARIET (RABEPRAZOLE) [Suspect]
     Route: 048
     Dates: start: 20091214

REACTIONS (2)
  - HAEMATEMESIS [None]
  - HAEMATURIA [None]
